FAERS Safety Report 5921408-9 (Version None)
Quarter: 2008Q4

REPORT INFORMATION
  Report Type: 
  Country: None (occurrence: None)
  Receive Date: 20081014
  Receipt Date: 20080912
  Transmission Date: 20090506
  Serious: Yes (Hospitalization)
  Sender: FDA-Public Use
  Company Number: 1-16568124

PATIENT
  Age: 70 Year
  Sex: Male
  Weight: 98.4306 kg

DRUGS (13)
  1. AMIODARONE HCL [Suspect]
     Indication: ATRIAL FIBRILLATION
     Dosage: 200 MG TWICE DAILY, ORAL
     Route: 048
     Dates: start: 20080801, end: 20080813
  2. LISINOPRIL [Concomitant]
  3. ASPIRIN (ACETYLSALICYLIC ACID) 81 MG [Concomitant]
  4. GLUMETZA (METFORMIN HYDROCHLORIDE) 500 MG [Concomitant]
  5. PROTONIX [Concomitant]
  6. FLAX SEED OIL 1000 MG [Concomitant]
  7. COUMADIN [Concomitant]
  8. NORVASC (AMLODIPINE BESYLATE) 10 MG [Concomitant]
  9. CRESTOR (ROSUVASTATIN CALCIUM) 10 MG [Concomitant]
  10. ZETIA (EZETIRNIBE) 10 MG [Concomitant]
  11. LUNESTA [Concomitant]
  12. TYLENOL (CAPLET) [Concomitant]
  13. COLCHICINE [Concomitant]

REACTIONS (11)
  - ABDOMINAL PAIN UPPER [None]
  - DIZZINESS [None]
  - FAECES DISCOLOURED [None]
  - FATIGUE [None]
  - FLATULENCE [None]
  - GASTRIC POLYPS [None]
  - GASTRITIS EROSIVE [None]
  - HYPERHIDROSIS [None]
  - INTERNATIONAL NORMALISED RATIO INCREASED [None]
  - NAUSEA [None]
  - VOMITING [None]
